FAERS Safety Report 23327169 (Version 1)
Quarter: 2023Q4

REPORT INFORMATION
  Report Type: Spontaneous
  Country: CN (occurrence: CN)
  Receive Date: 20231221
  Receipt Date: 20231221
  Transmission Date: 20240109
  Serious: Yes (Other)
  Sender: FDA-Public Use
  Company Number: CN-PFIZER INC-PV202300204355

PATIENT
  Age: 43 Year
  Sex: Male
  Weight: 60 kg

DRUGS (2)
  1. VFEND [Suspect]
     Active Substance: VORICONAZOLE
     Indication: Therapeutic procedure
     Dosage: 200 MG, 2X/DAY
     Route: 041
     Dates: start: 20231101
  2. Pu Li Shu Qing [Concomitant]
     Indication: Therapeutic procedure
     Dosage: 0.5 G, 1X/DAY
     Route: 048
     Dates: start: 20231106, end: 20231116

REACTIONS (2)
  - Venous thrombosis [Recovering/Resolving]
  - Venous thrombosis limb [Recovering/Resolving]

NARRATIVE: CASE EVENT DATE: 20231106
